FAERS Safety Report 6122271-6 (Version None)
Quarter: 2009Q1

REPORT INFORMATION
  Report Type: 
  Country: None (occurrence: None)
  Receive Date: 20090316
  Receipt Date: 20090316
  Transmission Date: 20090719
  Serious: Yes (Other)
  Sender: FDA-Public Use
  Company Number: None

PATIENT
  Sex: Female
  Weight: 13 kg

DRUGS (1)
  1. TRIAMCINOLONE ACETONIDE [Suspect]
     Indication: HYPERTROPHIC SCAR
     Dosage: 320 MG XL INTRALESIONAL
     Route: 026
     Dates: start: 20081020, end: 20081020

REACTIONS (13)
  - ADRENAL SUPPRESSION [None]
  - AFFECTIVE DISORDER [None]
  - ASTHMA [None]
  - CUSHINGOID [None]
  - EPISTAXIS [None]
  - FAT TISSUE INCREASED [None]
  - FATIGUE [None]
  - FLUSHING [None]
  - HYPERHIDROSIS [None]
  - HYPERPHAGIA [None]
  - HYPERTRICHOSIS [None]
  - TEMPERATURE INTOLERANCE [None]
  - WEIGHT INCREASED [None]
